FAERS Safety Report 5876305-4 (Version None)
Quarter: 2008Q3

REPORT INFORMATION
  Report Type: 
  Country: None (occurrence: None)
  Receive Date: 20080910
  Receipt Date: 20080905
  Transmission Date: 20090109
  Serious: Yes (Other)
  Sender: FDA-Public Use
  Company Number: GB-WATSON-2008-04757

PATIENT
  Sex: Male

DRUGS (5)
  1. ANDRODERM [Suspect]
     Indication: ANDROGEN DEFICIENCY
     Dosage: 2.5 MG, DAILY
     Route: 062
     Dates: start: 20080704, end: 20080726
  2. SERETIDE                           /01420901/ [Suspect]
     Indication: DRUG USE FOR UNKNOWN INDICATION
     Dosage: 4 PUFFS, DAILY
     Route: 055
  3. PREDNISOLONE [Concomitant]
     Indication: DRUG USE FOR UNKNOWN INDICATION
     Dosage: 30 TABLETS
     Dates: end: 20080701
  4. ALBUTEROL [Concomitant]
     Dosage: UNK
  5. TIOTROPIUM [Concomitant]
     Dosage: UNK

REACTIONS (2)
  - ABNORMAL BEHAVIOUR [None]
  - HALLUCINATION [None]
